FAERS Safety Report 9384934 (Version 1)
Quarter: 2013Q3

REPORT INFORMATION
  Report Type: Spontaneous
  Country: US (occurrence: US)
  Receive Date: 20130705
  Receipt Date: 20130705
  Transmission Date: 20140515
  Serious: No
  Sender: FDA-Public Use
  Company Number: US-GLAXOSMITHKLINE-A0980686A

PATIENT
  Age: 58 Year
  Sex: Female
  Weight: 52.21 kg

DRUGS (11)
  1. BENLYSTA [Suspect]
     Indication: SYSTEMIC LUPUS ERYTHEMATOSUS
     Dosage: 120MG CYCLIC
     Route: 042
     Dates: start: 20110706, end: 20130325
  2. CYMBALTA [Suspect]
     Dosage: 30MG SEE DOSAGE TEXT
  3. PRILOSEC [Concomitant]
  4. LODINE [Concomitant]
  5. PLAQUENIL [Concomitant]
  6. GABAPENTIN [Concomitant]
     Dosage: 300MG PER DAY
  7. KEPPRA [Concomitant]
     Dosage: 500MG PER DAY
  8. LORAZEPAM [Concomitant]
     Dosage: 1MG PER DAY
  9. OXYCODONE [Concomitant]
     Indication: PAIN
  10. DICYCLOMINE [Concomitant]
     Indication: IRRITABLE BOWEL SYNDROME
  11. ZANAFLEX [Concomitant]

REACTIONS (9)
  - Blister [Not Recovered/Not Resolved]
  - Rash pruritic [Recovering/Resolving]
  - Rash erythematous [Recovering/Resolving]
  - Exfoliative rash [Recovering/Resolving]
  - Skin discolouration [Recovering/Resolving]
  - Nausea [Recovering/Resolving]
  - Headache [Recovering/Resolving]
  - Migraine [Unknown]
  - Pain [Unknown]
